FAERS Safety Report 11729856 (Version 1)
Quarter: 2015Q4

REPORT INFORMATION
  Report Type: Spontaneous
  Country: US (occurrence: US)
  Receive Date: 20151110
  Receipt Date: 20151110
  Transmission Date: 20160304
  Serious: No
  Sender: FDA-Public Use
  Company Number: US-ELI_LILLY_AND_COMPANY-US201110006255

PATIENT
  Sex: Female

DRUGS (2)
  1. FORTEO [Suspect]
     Active Substance: TERIPARATIDE
     Indication: OSTEOPOROSIS
     Dosage: 20 UG, QD
     Dates: start: 20111013
  2. FORTEO [Suspect]
     Active Substance: TERIPARATIDE
     Dosage: 20 UG, QD
     Dates: end: 201112

REACTIONS (12)
  - Injection site erythema [Unknown]
  - Chest pain [Recovered/Resolved]
  - Injection site pain [Unknown]
  - Anxiety [Recovered/Resolved]
  - Pain in extremity [Recovered/Resolved]
  - Panic attack [Unknown]
  - Tremor [Unknown]
  - Abdominal pain upper [Recovered/Resolved]
  - Nervousness [Unknown]
  - Injection site pruritus [Unknown]
  - Pain [Recovered/Resolved]
  - Constipation [Unknown]
